FAERS Safety Report 5440720-3 (Version None)
Quarter: 2007Q3

REPORT INFORMATION
  Report Type: 
  Country: None (occurrence: None)
  Receive Date: 20070731
  Receipt Date: 20070515
  Transmission Date: 20080115
  Serious: No
  Sender: FDA-Public Use
  Company Number: US200705003805

PATIENT
  Sex: Female

DRUGS (2)
  1. BYETTA [Suspect]
     Dosage: 2/D
     Dates: start: 20070501, end: 20070501
  2. SALINE (DEMO EXENATIDE PEN) (SALINE (EXENATIDE DEMONSTRATION PEN) [Concomitant]

REACTIONS (1)
  - DRUG ADMINISTRATION ERROR [None]
